FAERS Safety Report 5892956-5 (Version None)
Quarter: 2008Q3

REPORT INFORMATION
  Report Type: 
  Country: None (occurrence: None)
  Receive Date: 20080922
  Receipt Date: 20080922
  Transmission Date: 20090109
  Serious: Yes (Other)
  Sender: FDA-Public Use
  Company Number: None

PATIENT
  Age: 40 Year
  Sex: Female
  Weight: 68.0396 kg

DRUGS (1)
  1. DIAMOX [Suspect]
     Indication: BENIGN INTRACRANIAL HYPERTENSION
     Dosage: 500 MG TWICE DAILY PO
     Route: 048
     Dates: start: 19910814, end: 20080827

REACTIONS (1)
  - DIARRHOEA [None]
